FAERS Safety Report 6092775-3 (Version None)
Quarter: 2009Q1

REPORT INFORMATION
  Report Type: 
  Country: None (occurrence: None)
  Receive Date: 20090225
  Receipt Date: 20090219
  Transmission Date: 20090719
  Serious: Yes (Other)
  Sender: FDA-Public Use
  Company Number: CA-ALLERGAN-0807029US

PATIENT
  Sex: Female
  Weight: 41 kg

DRUGS (1)
  1. BOTOX COSMETIC [Suspect]
     Indication: SKIN WRINKLING
     Dosage: UNK, SINGLE
     Route: 030
     Dates: start: 20010101, end: 20010101

REACTIONS (6)
  - FACIAL PALSY [None]
  - INJECTION SITE REACTION [None]
  - LOCAL ANAESTHESIA [None]
  - OVERDOSE [None]
  - SKIN ATROPHY [None]
  - SKIN WRINKLING [None]
